FAERS Safety Report 24958266 (Version 2)
Quarter: 2025Q1

REPORT INFORMATION
  Report Type: Spontaneous
  Country: US (occurrence: US)
  Receive Date: 20250212
  Receipt Date: 20250212
  Transmission Date: 20250408
  Serious: Yes (Hospitalization, Other)
  Sender: AMGEN
  Company Number: US-AMGEN-USASP2025023917

PATIENT
  Age: 15 Year
  Sex: Female

DRUGS (9)
  1. APREMILAST [Suspect]
     Active Substance: APREMILAST
     Indication: Psoriasis
     Route: 065
  2. APREMILAST [Suspect]
     Active Substance: APREMILAST
     Dosage: 30 MILLIGRAM, BID DAY 6 ONWORDS
     Route: 065
  3. APREMILAST [Suspect]
     Active Substance: APREMILAST
     Dosage: 30 MILLIGRAM, BID
     Route: 065
  4. INFLIXIMAB [Suspect]
     Active Substance: INFLIXIMAB
     Indication: Psoriasis
     Dosage: 10 MILLIGRAM, Q6WK
     Route: 040
  5. ADALIMUMAB [Suspect]
     Active Substance: ADALIMUMAB
     Indication: Psoriasis
     Dosage: 40 MILLIGRAM, Q2WK
     Route: 058
  6. AZATHIOPRINE [Concomitant]
     Active Substance: AZATHIOPRINE
     Dosage: 1 MILLIGRAM, QD
  7. METHOTREXATE [Concomitant]
     Active Substance: METHOTREXATE
     Dosage: 7.5 MILLIGRAM, QWK
     Route: 048
  8. CLOBETASOL [Concomitant]
     Active Substance: CLOBETASOL
     Dosage: UNK UNK, BID
  9. ISOTRETINOIN [Concomitant]
     Active Substance: ISOTRETINOIN
     Dosage: 30 MILLIGRAM, QD

REACTIONS (9)
  - Staphylococcal bacteraemia [Unknown]
  - Myositis [Unknown]
  - Arthritis bacterial [Unknown]
  - Psoriasis [Unknown]
  - Hypertransaminasaemia [Unknown]
  - Nausea [Recovered/Resolved]
  - Off label use [Unknown]
  - Therapy interrupted [Unknown]
  - Drug specific antibody [Unknown]
